FAERS Safety Report 5987450-7 (Version None)
Quarter: 2008Q4

REPORT INFORMATION
  Report Type: 
  Country: None (occurrence: None)
  Receive Date: 20081209
  Receipt Date: 20081203
  Transmission Date: 20090506
  Serious: Yes (Death)
  Sender: FDA-Public Use
  Company Number: GB-AVENTIS-200821266GDDC

PATIENT
  Age: 73 Year
  Sex: Male
  Weight: 76.2 kg

DRUGS (4)
  1. DOCETAXEL [Suspect]
     Route: 042
     Dates: start: 20081022, end: 20081112
  2. ZOLEDRONIC ACID [Suspect]
     Route: 042
     Dates: start: 20081022, end: 20081112
  3. HORMONES AND RELATED AGENTS [Suspect]
     Dosage: DOSE: UNK
     Dates: start: 20081007
  4. PREDNISOLONE [Concomitant]
     Route: 048
     Dates: start: 20081022, end: 20081121

REACTIONS (3)
  - HAEMATEMESIS [None]
  - NEUTROPENIC SEPSIS [None]
  - PEPTIC ULCER HAEMORRHAGE [None]
